FAERS Safety Report 9334057 (Version 1)
Quarter: 2013Q2

REPORT INFORMATION
  Report Type: Spontaneous
  Country: US (occurrence: US)
  Receive Date: 20130606
  Receipt Date: 20130606
  Transmission Date: 20140414
  Serious: No
  Sender: FDA-Public Use
  Company Number: US-AMGEN-USASP2013013882

PATIENT
  Age: 82 Year
  Sex: Female

DRUGS (11)
  1. PROLIA [Suspect]
     Indication: OSTEOPOROSIS
     Dosage: UNK
     Dates: start: 20130225
  2. PREDNISONE [Concomitant]
     Dosage: 5 MG 2 TABLETS, UNK
     Dates: start: 20130225
  3. GLUCOTROL [Concomitant]
  4. ISOSORBIDE [Concomitant]
  5. METOPROLOL [Concomitant]
  6. OPANA [Concomitant]
     Indication: PAIN
     Dosage: 5 MG, AS NECESSARY
  7. SYNTHROID [Concomitant]
     Dosage: 100 MUG, QD
  8. CYMBALTA [Concomitant]
  9. TRILIPIX [Concomitant]
  10. MODAFINIL [Concomitant]
  11. RAMIPRIL [Concomitant]

REACTIONS (6)
  - Arthralgia [Not Recovered/Not Resolved]
  - Oedema peripheral [Not Recovered/Not Resolved]
  - Skin burning sensation [Not Recovered/Not Resolved]
  - Burning sensation [Unknown]
  - Erythema [Not Recovered/Not Resolved]
  - Stress [Not Recovered/Not Resolved]
